FAERS Safety Report 18972612 (Version 1)
Quarter: 2021Q1

REPORT INFORMATION
  Report Type: Spontaneous
  Country: US (occurrence: US)
  Receive Date: 20210305
  Receipt Date: 20210305
  Transmission Date: 20210420
  Serious: Yes (Death, Hospitalization, Other)
  Sender: FDA-Public Use
  Company Number: US-SA-2020SA374266

PATIENT
  Age: 43 Year
  Sex: Male

DRUGS (12)
  1. TACROLIMUS. [Suspect]
     Active Substance: TACROLIMUS
     Dosage: PATIENT^S TARGET TACROLIMUS TROUGH LEVEL WAS REDUCED TO 4?6 NG/ML
  2. TACROLIMUS. [Suspect]
     Active Substance: TACROLIMUS
     Dosage: GOAL TROUGH 3?4 NG/ML
  3. TACROLIMUS. [Suspect]
     Active Substance: TACROLIMUS
     Indication: IMMUNOSUPPRESSANT DRUG THERAPY
     Dosage: GOAL TROUGH 6?8 NG/ML
  4. MYCOPHENOLATE MOFETIL. [Suspect]
     Active Substance: MYCOPHENOLATE MOFETIL
     Dosage: 500 MG, BID
  5. PREDNISONE. [Suspect]
     Active Substance: PREDNISONE
     Indication: IMMUNOSUPPRESSANT DRUG THERAPY
     Dosage: UNK
  6. ANTI?THYMOCYTE GLOBULIN (RABBIT) NOS [Suspect]
     Active Substance: LAPINE T-LYMPHOCYTE IMMUNE GLOBULIN
     Dosage: IMMUNOSUPPRESSION REDUCTION
  7. PREDNISONE. [Suspect]
     Active Substance: PREDNISONE
     Dosage: 10 MG, QD, INCREASED
  8. MYCOPHENOLATE MOFETIL. [Suspect]
     Active Substance: MYCOPHENOLATE MOFETIL
     Dosage: REDUCED TO 250 MG, BID
  9. MYCOPHENOLATE MOFETIL. [Suspect]
     Active Substance: MYCOPHENOLATE MOFETIL
     Indication: IMMUNOSUPPRESSANT DRUG THERAPY
  10. PREDNISONE. [Suspect]
     Active Substance: PREDNISONE
     Dosage: REDUCED TO 5 MG DAILY
  11. ANTI?THYMOCYTE GLOBULIN (RABBIT) NOS [Suspect]
     Active Substance: LAPINE T-LYMPHOCYTE IMMUNE GLOBULIN
     Indication: IMMUNOSUPPRESSANT DRUG THERAPY
     Dosage: UNK
  12. ANTI?THYMOCYTE GLOBULIN (RABBIT) NOS [Suspect]
     Active Substance: LAPINE T-LYMPHOCYTE IMMUNE GLOBULIN
     Dosage: A CUMULATIVE DOSE OF 440 MG IV)
     Route: 042

REACTIONS (27)
  - Cough [Fatal]
  - Papule [Fatal]
  - Dry eye [Fatal]
  - Emphysema [Fatal]
  - Skin plaque [Fatal]
  - Intestinal ischaemia [Unknown]
  - Joint stiffness [Fatal]
  - Opportunistic infection [Unknown]
  - Cytomegalovirus viraemia [Unknown]
  - Chronic graft versus host disease [Fatal]
  - Neurodermatitis [Fatal]
  - Peritonitis [Unknown]
  - Parvovirus B19 infection [Unknown]
  - Dyspnoea exertional [Fatal]
  - Bronchiectasis [Fatal]
  - Arthralgia [Fatal]
  - Paraplegia [Unknown]
  - Abdominal infection [Unknown]
  - Disseminated varicella zoster virus infection [Unknown]
  - Pneumocystis jirovecii pneumonia [Unknown]
  - Bronchopulmonary aspergillosis [Unknown]
  - Decreased appetite [Fatal]
  - Clostridium difficile colitis [Unknown]
  - Cytomegalovirus colitis [Unknown]
  - Volvulus [Unknown]
  - Pancytopenia [Unknown]
  - Epstein-Barr virus infection [Unknown]
